FAERS Safety Report 4982241-8 (Version None)
Quarter: 2006Q2

REPORT INFORMATION
  Report Type: 
  Country: None (occurrence: None)
  Receive Date: 20060424
  Receipt Date: 20060424
  Transmission Date: 20061013
  Serious: Yes (Hospitalization)
  Sender: FDA-Public Use
  Company Number: None

PATIENT
  Sex: Male
  Weight: 86.1834 kg

DRUGS (2)
  1. TEMODAR [Suspect]
     Indication: GLIOBLASTOMA MULTIFORME
     Dosage: 100 MG DAILY PO
     Route: 048
     Dates: start: 20060301, end: 20060415
  2. TEMODAR [Suspect]
     Dosage: 40 M DAILY PO
     Route: 048
     Dates: start: 20060301, end: 20060415

REACTIONS (4)
  - CHILLS [None]
  - DRUG INEFFECTIVE [None]
  - PYREXIA [None]
  - TREMOR [None]
